FAERS Safety Report 4522797-2 (Version None)
Quarter: 2004Q4

REPORT INFORMATION
  Report Type: 
  Country: None (occurrence: None)
  Receive Date: 20041207
  Receipt Date: 20041125
  Transmission Date: 20050328
  Serious: Yes (Hospitalization)
  Sender: FDA-Public Use
  Company Number: A02200403513

PATIENT
  Age: 61 Year
  Sex: Male

DRUGS (2)
  1. ELOXATINE - (OXALIPLATIN) - POWDER - 5 MG/ML [Suspect]
     Indication: HEPATIC NEOPLASM MALIGNANT
     Dosage: 150 MG OTHER INTRAVENOUS NOS
     Route: 042
     Dates: start: 20040712, end: 20040712
  2. GEMZAR [Suspect]
     Indication: HEPATIC NEOPLASM MALIGNANT
     Dosage: 2000 MG OTHER INTRAVENOUS NOS
     Route: 042
     Dates: start: 20040712, end: 20040712

REACTIONS (5)
  - AGITATION [None]
  - CEREBRAL VENOUS THROMBOSIS [None]
  - CONFUSIONAL STATE [None]
  - FALL [None]
  - MUSCULAR WEAKNESS [None]
